FAERS Safety Report 5325589-X (Version None)
Quarter: 2007Q2

REPORT INFORMATION
  Report Type: 
  Country: None (occurrence: None)
  Receive Date: 20070515
  Receipt Date: 20070502
  Transmission Date: 20071010
  Serious: Yes (Hospitalization)
  Sender: FDA-Public Use
  Company Number: MX-ELI_LILLY_AND_COMPANY-MX200705000766

PATIENT
  Age: 36 Year
  Sex: Female

DRUGS (1)
  1. YENTREVE [Suspect]
     Indication: URINARY INCONTINENCE

REACTIONS (1)
  - PSYCHOTIC DISORDER [None]
